FAERS Safety Report 8360010-9 (Version None)
Quarter: 2012Q2

REPORT INFORMATION
  Report Type: 
  Country: None (occurrence: None)
  Receive Date: 20120515
  Receipt Date: 20120511
  Transmission Date: 20120825
  Serious: Yes (Other)
  Sender: FDA-Public Use
  Company Number: PHEH2012US008994

PATIENT
  Sex: Female

DRUGS (13)
  1. FOSAMAX [Concomitant]
  2. PRAVASTATIN [Concomitant]
  3. PROLEUKIN [Concomitant]
  4. BONIVA [Concomitant]
  5. LUMIGAN [Concomitant]
  6. FORTEO [Concomitant]
  7. TERAZOGAN [Concomitant]
  8. AMBIEN [Concomitant]
  9. TRIAMTERENE AND HYDROCHLOROTHIAZID [Concomitant]
  10. POTASSIUM CHLORIDE [Concomitant]
  11. DIOVAN [Suspect]
     Dosage: 80 MG, UNK
  12. XANAX [Concomitant]
  13. DILTIAZEM [Concomitant]

REACTIONS (6)
  - GLAUCOMA [None]
  - CEREBROVASCULAR ACCIDENT [None]
  - HIP FRACTURE [None]
  - RETINAL DISORDER [None]
  - METAMORPHOPSIA [None]
  - EYE PAIN [None]
